FAERS Safety Report 8797317 (Version 2)
Quarter: 2012Q4

REPORT INFORMATION
  Report Type: 
  Country: US (occurrence: US)
  Receive Date: 20120920
  Receipt Date: 20121114
  Transmission Date: 20130627
  Serious: Yes (Death, Other)
  Sender: FDA-Public Use
  Company Number: US-AMGEN-USASP2012057339

PATIENT
  Age: 68 Year
  Sex: Male

DRUGS (1)
  1. EPOGEN [Suspect]
     Indication: PRODUCT USED FOR UNKNOWN INDICATION
     Dosage: 15000 unit, 2 times/wk

REACTIONS (4)
  - Death [Fatal]
  - Haemoglobin decreased [Unknown]
  - Terminal state [Not Recovered/Not Resolved]
  - Therapeutic response decreased [Not Recovered/Not Resolved]
